FAERS Safety Report 5058600-4 (Version None)
Quarter: 2006Q2

REPORT INFORMATION
  Report Type: 
  Country: None (occurrence: None)
  Receive Date: 20060627
  Receipt Date: 20060404
  Transmission Date: 20061013
  Serious: Yes (Other)
  Sender: FDA-Public Use
  Company Number: 443325

PATIENT
  Age: 73 Year
  Sex: Female

DRUGS (1)
  1. XELODA [Suspect]
     Indication: DRUG USE FOR UNKNOWN INDICATION
     Dosage: ORAL
     Route: 048
     Dates: start: 20060331, end: 20060402

REACTIONS (2)
  - ARTERIOSPASM CORONARY [None]
  - ELECTROCARDIOGRAM ST SEGMENT ELEVATION [None]
